FAERS Safety Report 24934918 (Version 1)
Quarter: 2025Q1

REPORT INFORMATION
  Report Type: Report from Study
  Country: CN (occurrence: CN)
  Receive Date: 20250206
  Receipt Date: 20250206
  Transmission Date: 20250408
  Serious: Yes (Other)
  Sender: JOHNSON AND JOHNSON
  Company Number: CN-JNJFOC-20250175642

PATIENT

DRUGS (2)
  1. STELARA [Suspect]
     Active Substance: USTEKINUMAB
     Indication: Psoriasis
     Route: 058
  2. STELARA [Suspect]
     Active Substance: USTEKINUMAB
     Route: 058

REACTIONS (10)
  - Ovarian cancer [Unknown]
  - Tuberculosis of peripheral lymph nodes [Unknown]
  - Benign neoplasm [Unknown]
  - Alcoholic liver disease [Unknown]
  - Cirrhosis alcoholic [Unknown]
  - Abdominal wall abscess [Unknown]
  - Neoplasm malignant [Unknown]
  - Exposure during pregnancy [Unknown]
  - Erythrodermic psoriasis [Unknown]
  - Pityriasis rubra pilaris [Unknown]
